FAERS Safety Report 9738529 (Version 5)
Quarter: 2014Q1

REPORT INFORMATION
  Report Type: Spontaneous
  Country: TR (occurrence: TR)
  Receive Date: 20131209
  Receipt Date: 20140327
  Transmission Date: 20141002
  Serious: Yes (Other)
  Sender: FDA-Public Use
  Company Number: TR-PFIZER INC-2013347287

PATIENT
  Age: 63 Year
  Sex: Male

DRUGS (8)
  1. SUTENT [Suspect]
     Indication: RENAL CANCER METASTATIC
     Dosage: 37.5 MG, 1X/DAY
     Route: 048
     Dates: start: 2012
  2. SUTENT [Suspect]
     Dosage: 50 MG, 1X/DAY
     Dates: start: 2014
  3. CARDURA XL [Concomitant]
     Dosage: UNK
  4. LANSOR [Concomitant]
     Dosage: UNK
  5. BELOC ZOK [Concomitant]
     Dosage: 50 MG, UNK
  6. CORASPIN [Concomitant]
     Dosage: 100 MG, DAILY
  7. DIAFORMIN [Concomitant]
     Indication: DIABETES MELLITUS
  8. DIAMICRON [Concomitant]
     Indication: DIABETES MELLITUS

REACTIONS (7)
  - Venous haemorrhage [Not Recovered/Not Resolved]
  - Disease recurrence [Not Recovered/Not Resolved]
  - Renal cancer metastatic [Not Recovered/Not Resolved]
  - Purpura [Not Recovered/Not Resolved]
  - Dizziness [Not Recovered/Not Resolved]
  - Nausea [Not Recovered/Not Resolved]
  - Dyspnoea [Unknown]
